FAERS Safety Report 9417023 (Version 1)
Quarter: 2013Q3

REPORT INFORMATION
  Report Type: Spontaneous
  Country: US (occurrence: US)
  Receive Date: 20130724
  Receipt Date: 20130724
  Transmission Date: 20140515
  Serious: Yes (Hospitalization, Disabling, Other)
  Sender: FDA-Public Use
  Company Number: JP-SANOFI-AVENTIS-2013SA037397

PATIENT
  Age: 38 Year
  Sex: Male
  Weight: 77.11 kg

DRUGS (14)
  1. AMBIEN [Suspect]
     Indication: PRODUCT USED FOR UNKNOWN INDICATION
     Route: 065
  2. DEPAKOTE ER [Suspect]
     Indication: BIPOLAR DISORDER
     Dosage: DAILY DOSE: TRILAED DEPAKOTE SR 250 TO 750
     Route: 065
     Dates: start: 20070607, end: 20070703
  3. LITHIUM [Suspect]
     Indication: PRODUCT USED FOR UNKNOWN INDICATION
     Route: 065
  4. WELLBUTRIN [Suspect]
     Indication: PRODUCT USED FOR UNKNOWN INDICATION
     Dosage: DOSE: 150/300
     Route: 065
     Dates: start: 20050214, end: 20060124
  5. ATIVAN [Suspect]
     Indication: PRODUCT USED FOR UNKNOWN INDICATION
     Route: 065
  6. EFFEXOR [Suspect]
     Indication: PRODUCT USED FOR UNKNOWN INDICATION
     Route: 065
  7. CONCERTA [Suspect]
     Indication: PRODUCT USED FOR UNKNOWN INDICATION
     Route: 065
     Dates: start: 20070112, end: 20070124
  8. CONCERTA [Suspect]
     Indication: PRODUCT USED FOR UNKNOWN INDICATION
     Route: 065
     Dates: start: 20071106, end: 20080320
  9. CONCERTA [Suspect]
     Indication: PRODUCT USED FOR UNKNOWN INDICATION
     Route: 065
     Dates: start: 20050418
  10. TRILEPTAL [Suspect]
     Indication: PRODUCT USED FOR UNKNOWN INDICATION
     Route: 065
  11. ALL OTHER THERAPEUTIC PRODUCTS [Suspect]
     Indication: PRODUCT USED FOR UNKNOWN INDICATION
     Route: 065
     Dates: start: 20060726, end: 20060731
  12. ALL OTHER THERAPEUTIC PRODUCTS [Suspect]
     Indication: PRODUCT USED FOR UNKNOWN INDICATION
     Route: 065
     Dates: start: 20060815, end: 20060824
  13. ALL OTHER THERAPEUTIC PRODUCTS [Suspect]
     Indication: PRODUCT USED FOR UNKNOWN INDICATION
     Route: 065
     Dates: start: 20060907, end: 20060912
  14. LEXAPRO [Concomitant]
     Dates: start: 20070925, end: 20080320

REACTIONS (17)
  - Atrial fibrillation [Unknown]
  - Myocardial infarction [Unknown]
  - Unevaluable event [Unknown]
  - Panic attack [Unknown]
  - Unevaluable event [Unknown]
  - Suicide attempt [Unknown]
  - Suicide attempt [Unknown]
  - Suicide attempt [Unknown]
  - Suicide attempt [Unknown]
  - Suicide attempt [Unknown]
  - Suicide attempt [Unknown]
  - Suicide attempt [Unknown]
  - Suicide attempt [Unknown]
  - Suicide attempt [Unknown]
  - Suicide attempt [Unknown]
  - Nasopharyngitis [Unknown]
  - Gastrointestinal disorder [Unknown]
